FAERS Safety Report 13442594 (Version 1)
Quarter: 2017Q2

REPORT INFORMATION
  Report Type: Spontaneous
  Country: US (occurrence: US)
  Receive Date: 20170413
  Receipt Date: 20170413
  Transmission Date: 20170830
  Serious: Yes (Hospitalization)
  Sender: FDA-Public Use
  Company Number: None

PATIENT
  Age: 56 Year
  Sex: Female
  Weight: 72.6 kg

DRUGS (2)
  1. IFOSFAMIDE. [Suspect]
     Active Substance: IFOSFAMIDE
     Dates: end: 20170329
  2. DOXORUBICIN HYDROCHLORIDE. [Suspect]
     Active Substance: DOXORUBICIN HYDROCHLORIDE
     Dates: end: 20170330

REACTIONS (8)
  - Pancytopenia [None]
  - Bacterial test [None]
  - Mucosal inflammation [None]
  - Hyponatraemia [None]
  - Post procedural haemorrhage [None]
  - Febrile neutropenia [None]
  - Proteinuria [None]
  - Wound complication [None]

NARRATIVE: CASE EVENT DATE: 20170406
